FAERS Safety Report 16244780 (Version 2)
Quarter: 2019Q3

REPORT INFORMATION
  Report Type: Report from Study
  Country: NL (occurrence: NL)
  Receive Date: 20190426
  Receipt Date: 20190806
  Transmission Date: 20191004
  Serious: Yes (Hospitalization)
  Sender: FDA-Public Use
  Company Number: NL-BIOMARINAP-NL-2019-123220

PATIENT
  Age: 19 Year

DRUGS (2)
  1. KUVAN [Suspect]
     Active Substance: SAPROPTERIN DIHYDROCHLORIDE
     Indication: PRODUCT USED FOR UNKNOWN INDICATION
     Dosage: 1165 MILLIGRAM, QD
     Route: 065
     Dates: start: 20140519
  2. KUVAN [Suspect]
     Active Substance: SAPROPTERIN DIHYDROCHLORIDE
     Dosage: 1030 MILLIGRAM, QD
     Route: 065
     Dates: start: 20140106, end: 20140518

REACTIONS (1)
  - Ligament operation [Recovered/Resolved with Sequelae]

NARRATIVE: CASE EVENT DATE: 20180325
